FAERS Safety Report 12342819 (Version 1)
Quarter: 2016Q2

REPORT INFORMATION
  Report Type: Spontaneous
  Country: NL (occurrence: NL)
  Receive Date: 20160506
  Receipt Date: 20160506
  Transmission Date: 20160815
  Serious: Yes (Hospitalization)
  Sender: FDA-Public Use
  Company Number: NL-TEVA-657784ACC

PATIENT
  Age: 58 Year
  Sex: Female
  Weight: 61 kg

DRUGS (2)
  1. CAPECITABINE TABLET FO 150MG [Interacting]
     Active Substance: CAPECITABINE
     Indication: COLON CANCER
     Dosage: EXTRA INFO: 14 DAYS OF THE 3 WEEKS
     Route: 048
     Dates: start: 20120604, end: 20120925
  2. OXALIPLATINE INFOPL CONC 5MG/ML [Suspect]
     Active Substance: OXALIPLATIN
     Indication: COLON CANCER
     Dosage: EXTRA INFO: ONCE EVERY THREE WEEKS COURSE
     Route: 042
     Dates: start: 20120604, end: 20120925

REACTIONS (4)
  - Hepatic steatosis [Recovering/Resolving]
  - Portal hypertension [Recovering/Resolving]
  - Ascites [Recovering/Resolving]
  - Drug interaction [Unknown]

NARRATIVE: CASE EVENT DATE: 20120924
